FAERS Safety Report 6362802-4 (Version None)
Quarter: 2009Q3

REPORT INFORMATION
  Report Type: 
  Country: None (occurrence: None)
  Receive Date: 20090919
  Receipt Date: 20090616
  Transmission Date: 20100115
  Serious: Yes (Other)
  Sender: FDA-Public Use
  Company Number: US-ABBOTT-09P-163-0579332-00

PATIENT
  Sex: Male

DRUGS (3)
  1. HUMIRA [Suspect]
     Indication: CROHN'S DISEASE
     Route: 058
     Dates: start: 20090123, end: 20090123
  2. HUMIRA [Suspect]
     Route: 058
     Dates: start: 20090201, end: 20090601
  3. UNKNOWN PAIN MEDICATION [Concomitant]
     Indication: PAIN

REACTIONS (3)
  - ABSCESS [None]
  - COGNITIVE DISORDER [None]
  - GASTROINTESTINAL DISORDER [None]
